FAERS Safety Report 12550481 (Version 1)
Quarter: 2016Q3

REPORT INFORMATION
  Report Type: Spontaneous
  Country: JP (occurrence: JP)
  Receive Date: 20160712
  Receipt Date: 20160712
  Transmission Date: 20161109
  Serious: Yes (Hospitalization, Other)
  Sender: FDA-Public Use
  Company Number: GXJP2016JP001135

PATIENT
  Age: 79 Year
  Sex: Male

DRUGS (1)
  1. CEFTRIAXONE NA FOR INTRAVENOUS INJECTION [Suspect]
     Active Substance: CEFTRIAXONE
     Indication: CHOLECYSTITIS
     Dosage: 1 G
     Route: 042

REACTIONS (2)
  - Altered state of consciousness [Recovered/Resolved]
  - Somnolence [Recovered/Resolved]
